FAERS Safety Report 11068326 (Version 1)
Quarter: 2015Q2

REPORT INFORMATION
  Report Type: Spontaneous
  Country: US (occurrence: None)
  Receive Date: 20150424
  Receipt Date: 20150424
  Transmission Date: 20150821
  Serious: Yes (Disabling)
  Sender: FDA-Public Use
  Company Number: None

PATIENT
  Age: 83 Year

DRUGS (1)
  1. SIMBRINZA [Suspect]
     Active Substance: BRIMONIDINE TARTRATE\BRINZOLAMIDE
     Indication: INTRAOCULAR PRESSURE INCREASED
     Dosage: EYE DROP IN EACH EYE  TWICE DAILY  INTO THE EYE
     Route: 031

REACTIONS (4)
  - Gait disturbance [None]
  - Asthenia [None]
  - Movement disorder [None]
  - Memory impairment [None]

NARRATIVE: CASE EVENT DATE: 20150305
